FAERS Safety Report 4556813-9 (Version None)
Quarter: 2005Q1

REPORT INFORMATION
  Report Type: 
  Country: None (occurrence: None)
  Receive Date: 20050120
  Receipt Date: 20050111
  Transmission Date: 20050727
  Serious: Yes (Other)
  Sender: FDA-Public Use
  Company Number: US-GLAXOSMITHKLINE-A0540209A

PATIENT
  Age: 64 Year
  Sex: Male
  Weight: 112.7 kg

DRUGS (3)
  1. NICORETTE (MINT) [Suspect]
     Route: 002
     Dates: start: 20040401
  2. GLUCOPHAGE [Concomitant]
     Route: 048
  3. AMARYL [Concomitant]
     Route: 048

REACTIONS (5)
  - BLOOD GLUCOSE INCREASED [None]
  - DEPENDENCE [None]
  - DIARRHOEA [None]
  - INTENTIONAL MISUSE [None]
  - TOOTH DISORDER [None]
